FAERS Safety Report 4870463-6 (Version None)
Quarter: 2006Q1

REPORT INFORMATION
  Report Type: 
  Country: None (occurrence: None)
  Receive Date: 20060103
  Receipt Date: 20051115
  Transmission Date: 20060701
  Serious: Yes (Hospitalization, Other)
  Sender: FDA-Public Use
  Company Number: CA-AMGEN-US158144

PATIENT
  Sex: Female
  Weight: 48.7 kg

DRUGS (10)
  1. ARANESP [Suspect]
     Indication: ANAEMIA
     Route: 058
     Dates: start: 20050723
  2. EPREX [Suspect]
     Indication: ANAEMIA
     Route: 058
     Dates: start: 19990629, end: 20050723
  3. CELLCEPT [Suspect]
  4. CANDESARTAN [Concomitant]
     Route: 048
     Dates: start: 20050620
  5. ACTONEL [Concomitant]
     Route: 048
     Dates: start: 20010307
  6. CALCIUM GLUCONATE [Concomitant]
     Route: 048
     Dates: start: 20050620
  7. AMLODIPINE [Concomitant]
     Route: 048
     Dates: start: 20050605
  8. SODIUM BICARBONATE [Concomitant]
     Route: 048
     Dates: start: 20050706
  9. PANTOPRAZOLE [Concomitant]
     Route: 048
     Dates: start: 20050620
  10. PREDNISONE [Concomitant]
     Route: 048
     Dates: start: 19990828

REACTIONS (5)
  - BONE MARROW FAILURE [None]
  - EYE ALLERGY [None]
  - INFECTION [None]
  - MOUTH ULCERATION [None]
  - THERAPEUTIC RESPONSE DECREASED [None]
